FAERS Safety Report 10238881 (Version 1)
Quarter: 2014Q2

REPORT INFORMATION
  Report Type: Report from Study
  Country: US (occurrence: US)
  Receive Date: 20140616
  Receipt Date: 20140616
  Transmission Date: 20141212
  Serious: Yes (Other)
  Sender: FDA-Public Use
  Company Number: US-ROCHE-1416823

PATIENT
  Sex: Male
  Weight: 104.42 kg

DRUGS (6)
  1. ERIVEDGE [Suspect]
     Indication: BASAL CELL CARCINOMA
     Route: 048
     Dates: start: 201404
  2. PERCOCET [Concomitant]
     Indication: PAIN
     Dosage: DOSE: 10/325MG
     Route: 048
  3. AMITRIPTYLINE [Concomitant]
     Indication: IRRITABLE BOWEL SYNDROME
     Route: 048
  4. AMITRIPTYLINE [Concomitant]
     Indication: ABDOMINAL PAIN UPPER
  5. PRIMIDONE [Concomitant]
     Indication: TREMOR
     Dosage: TWICE
     Route: 048
  6. FLOMAX (UNITED STATES) [Concomitant]
     Route: 065

REACTIONS (6)
  - Choking sensation [Not Recovered/Not Resolved]
  - Pain [Not Recovered/Not Resolved]
  - Fatigue [Not Recovered/Not Resolved]
  - Muscle spasms [Not Recovered/Not Resolved]
  - Tremor [Recovering/Resolving]
  - Amnesia [Not Recovered/Not Resolved]
